FAERS Safety Report 8567602 (Version 3)
Quarter: 2012Q4

REPORT INFORMATION
  Report Type: 
  Country: BE (occurrence: BE)
  Receive Date: 20120517
  Receipt Date: 20121119
  Transmission Date: 20130627
  Serious: Yes (Other)
  Sender: FDA-Public Use
  Company Number: BE-ALLERGAN-1206755US

PATIENT
  Age: 56 Year
  Sex: Female

DRUGS (1)
  1. OZURDEX [Suspect]
     Indication: CENTRAL RETINAL VEIN OCCLUSION
     Dosage: 0.7 mg, single
     Route: 031
     Dates: start: 20120215, end: 20120312

REACTIONS (2)
  - Retinal detachment [Unknown]
  - Retinal tear [Unknown]
